FAERS Safety Report 17284551 (Version 1)
Quarter: 2020Q1

REPORT INFORMATION
  Report Type: Spontaneous
  Country: US (occurrence: US)
  Receive Date: 20200117
  Receipt Date: 20200117
  Transmission Date: 20200409
  Serious: Yes (Hospitalization, Other)
  Sender: FDA-Public Use
  Company Number: US-FRESENIUS KABI-FK202000466

PATIENT
  Age: 19 Year
  Sex: Male

DRUGS (7)
  1. IMMUNOGLOBULIN G HUMAN [Interacting]
     Active Substance: HUMAN IMMUNOGLOBULIN G
     Route: 065
  2. TECOVIRIMAT [Interacting]
     Active Substance: TECOVIRIMAT
     Indication: VACCINIA VIRUS INFECTION
     Dosage: 600MG TWICE A DAY
     Route: 048
  3. CYTARABINE (MANUFACTURER UNKNOWN) [Suspect]
     Active Substance: CYTARABINE
     Indication: ACUTE MYELOID LEUKAEMIA
     Dosage: 7+3 REGIMEN
     Route: 065
  4. CYTARABINE (MANUFACTURER UNKNOWN) [Interacting]
     Active Substance: CYTARABINE
     Dosage: CONSOLIDATION THERAPY
     Route: 065
  5. DAUNORUBICIN [Interacting]
     Active Substance: DAUNORUBICIN
     Indication: ACUTE MYELOID LEUKAEMIA
     Dosage: INDUCTION 7+3 REGIMEN
     Route: 065
  6. IMMUNOGLOBULIN G HUMAN [Interacting]
     Active Substance: HUMAN IMMUNOGLOBULIN G
     Indication: VACCINIA VIRUS INFECTION
     Dosage: 6,000 UNITS/KG
     Route: 042
  7. DAUNORUBICIN [Interacting]
     Active Substance: DAUNORUBICIN
     Dosage: CONSOLIDATION THERAPY
     Route: 065

REACTIONS (6)
  - Drug level decreased [Recovered/Resolved]
  - Cytopenia [Unknown]
  - Drug interaction [Recovered/Resolved]
  - Acute kidney injury [Recovered/Resolved]
  - Rash morbilliform [Recovered/Resolved]
  - Febrile neutropenia [Unknown]
